FAERS Safety Report 5574334-1 (Version None)
Quarter: 2007Q4

REPORT INFORMATION
  Report Type: 
  Country: None (occurrence: None)
  Receive Date: 20071221
  Receipt Date: 20071218
  Transmission Date: 20080405
  Serious: Yes (Other)
  Sender: FDA-Public Use
  Company Number: SPV1-2007-05229

PATIENT
  Age: 10 Year
  Sex: Male
  Weight: 61.2 kg

DRUGS (4)
  1. ADDERALL XR 30 [Suspect]
     Indication: ATTENTION DEFICIT/HYPERACTIVITY DISORDER
     Dosage: 30 MG, 1X/DAY:QD, ORAL; 20 MG, 1X/DAY:QD, ORAL; 30 MG, 1X/DAY:QD, ORAL
     Route: 048
     Dates: start: 20060901, end: 20061101
  2. ADDERALL XR 30 [Suspect]
     Indication: ATTENTION DEFICIT/HYPERACTIVITY DISORDER
     Dosage: 30 MG, 1X/DAY:QD, ORAL; 20 MG, 1X/DAY:QD, ORAL; 30 MG, 1X/DAY:QD, ORAL
     Route: 048
     Dates: start: 20071001, end: 20071101
  3. ADDERALL XR 30 [Suspect]
     Indication: ATTENTION DEFICIT/HYPERACTIVITY DISORDER
     Dosage: 30 MG, 1X/DAY:QD, ORAL; 20 MG, 1X/DAY:QD, ORAL; 30 MG, 1X/DAY:QD, ORAL
     Route: 048
     Dates: start: 20071101
  4. IMITREX [Concomitant]

REACTIONS (11)
  - AGGRESSION [None]
  - CONDITION AGGRAVATED [None]
  - CRYING [None]
  - DEPRESSION [None]
  - DRUG INEFFECTIVE [None]
  - INSOMNIA [None]
  - MIGRAINE [None]
  - PYROMANIA [None]
  - SUICIDAL IDEATION [None]
  - WEIGHT DECREASED [None]
  - WEIGHT INCREASED [None]
